FAERS Safety Report 7814198-6 (Version None)
Quarter: 2011Q4

REPORT INFORMATION
  Report Type: 
  Country: None (occurrence: None)
  Receive Date: 20111014
  Receipt Date: 20111011
  Transmission Date: 20120403
  Serious: Yes (Hospitalization, Other)
  Sender: FDA-Public Use
  Company Number: US-BRISTOL-MYERS SQUIBB COMPANY-16153363

PATIENT
  Age: 35 Year
  Sex: Female
  Weight: 69 kg

DRUGS (3)
  1. OXYCODONE HCL [Suspect]
  2. FENTANYL [Suspect]
  3. ERBITUX [Suspect]
     Indication: HEAD AND NECK CANCER
     Dosage: LAST DOSE ON 20SEP2011
     Route: 042
     Dates: start: 20110802, end: 20110920

REACTIONS (3)
  - APHONIA [None]
  - MUSCULAR WEAKNESS [None]
  - DEPRESSED LEVEL OF CONSCIOUSNESS [None]
